FAERS Safety Report 16746146 (Version 1)
Quarter: 2019Q4

REPORT INFORMATION
  Report Type: Spontaneous
  Country: US (occurrence: US)
  Receive Date: 20190827
  Receipt Date: 20190827
  Transmission Date: 20200122
  Serious: Yes (Death)
  Sender: FDA-Public Use
  Company Number: None

PATIENT
  Age: 76 Year
  Sex: Male

DRUGS (10)
  1. METOPROL TAR [Concomitant]
  2. GABAPENTIN. [Concomitant]
     Active Substance: GABAPENTIN
  3. LOSARTAN. [Concomitant]
     Active Substance: LOSARTAN
  4. BASAGLAR [Concomitant]
     Active Substance: INSULIN GLARGINE
  5. L-METHYL [Concomitant]
  6. DOFETILIDE. [Suspect]
     Active Substance: DOFETILIDE
     Indication: AORTIC VALVE DISEASE
     Route: 048
     Dates: start: 20190509
  7. PROBENECID. [Concomitant]
     Active Substance: PROBENECID
  8. DOXYCYC MONO [Concomitant]
     Active Substance: DOXYCYCLINE
  9. NIFEDIPINE. [Concomitant]
     Active Substance: NIFEDIPINE
  10. PREDNISONE. [Concomitant]
     Active Substance: PREDNISONE

REACTIONS (1)
  - Death [None]
